FAERS Safety Report 5721113-8 (Version None)
Quarter: 2008Q2

REPORT INFORMATION
  Report Type: 
  Country: None (occurrence: None)
  Receive Date: 20080429
  Receipt Date: 20080421
  Transmission Date: 20081010
  Serious: Yes (Death, Hospitalization)
  Sender: FDA-Public Use
  Company Number: A0699231A

PATIENT
  Age: 48 Year
  Sex: Male

DRUGS (3)
  1. ADVAIR HFA [Suspect]
     Indication: ASTHMA
     Dosage: 1PUFF TWICE PER DAY
     Route: 055
     Dates: start: 20050707, end: 20060329
  2. ALBUTEROL [Concomitant]
  3. IMODIUM [Concomitant]

REACTIONS (21)
  - ANAEMIA [None]
  - ANOXIC ENCEPHALOPATHY [None]
  - ASTHMA [None]
  - ATRIOVENTRICULAR BLOCK FIRST DEGREE [None]
  - BLOOD GLUCOSE INCREASED [None]
  - CONDITION AGGRAVATED [None]
  - DRUG INEFFECTIVE [None]
  - DRUG SCREEN POSITIVE [None]
  - DYSPNOEA EXERTIONAL [None]
  - HAEMATEMESIS [None]
  - HAEMATOCHEZIA [None]
  - HYPOTENSION [None]
  - HYPOTHERMIA [None]
  - LUNG HYPERINFLATION [None]
  - OVERDOSE [None]
  - PNEUMONIA ASPIRATION [None]
  - RESPIRATORY ARREST [None]
  - SINUS CONGESTION [None]
  - SINUS TACHYCARDIA [None]
  - TREATMENT NONCOMPLIANCE [None]
  - UNRESPONSIVE TO STIMULI [None]
